FAERS Safety Report 20196162 (Version 4)
Quarter: 2022Q1

REPORT INFORMATION
  Report Type: Spontaneous
  Country: JP (occurrence: JP)
  Receive Date: 20211216
  Receipt Date: 20220105
  Transmission Date: 20220423
  Serious: Yes (Hospitalization, Other)
  Sender: FDA-Public Use
  Company Number: JP-CELGENE-JPN-20211202514

PATIENT
  Age: 61 Year
  Sex: Male
  Weight: 73.8 kg

DRUGS (7)
  1. AZACITIDINE [Suspect]
     Active Substance: AZACITIDINE
     Indication: Myelodysplastic syndrome
     Dosage: 75 MILLIGRAM/SQ. METER
     Route: 041
     Dates: start: 20210910, end: 20211118
  2. VENETOCLAX [Suspect]
     Active Substance: VENETOCLAX
     Indication: Myelodysplastic syndrome
     Route: 065
  3. MAGNESIUM OXIDE [Concomitant]
     Active Substance: MAGNESIUM OXIDE
     Indication: Constipation
     Dosage: 660 MILLIGRAM
     Route: 048
     Dates: start: 20210913
  4. AMITIZA [Concomitant]
     Active Substance: LUBIPROSTONE
     Indication: Product used for unknown indication
     Dosage: 24 MICROGRAM
     Route: 048
     Dates: start: 20210917
  5. UREA [Concomitant]
     Active Substance: UREA
     Indication: Dry skin
     Dosage: 10 PERCENT
     Route: 062
     Dates: start: 20211015
  6. MIYA-BM [Concomitant]
     Active Substance: CLOSTRIDIUM BUTYRICUM SPORES STRAIN M-55
     Indication: Gastroenteritis
     Dosage: 18 TABLET
     Route: 048
     Dates: start: 20211129
  7. TEPRENONE [Concomitant]
     Active Substance: TEPRENONE
     Indication: Gastroenteritis
     Dosage: 450 MILLIGRAM
     Route: 048
     Dates: start: 20211129

REACTIONS (1)
  - Appendicitis [Not Recovered/Not Resolved]

NARRATIVE: CASE EVENT DATE: 20211202
